FAERS Safety Report 7144644-5 (Version None)
Quarter: 2010Q4

REPORT INFORMATION
  Report Type: 
  Country: None (occurrence: None)
  Receive Date: 20101208
  Receipt Date: 20101102
  Transmission Date: 20110411
  Serious: No
  Sender: FDA-Public Use
  Company Number: US-BAYER-201023469BCC

PATIENT
  Sex: Female
  Weight: 63.636 kg

DRUGS (7)
  1. ALEVE [Suspect]
     Indication: ARTHRITIS
     Dosage: DAILY DOSE 2 DF
  2. EXTRA STRENGTH TYLENOL PM [Concomitant]
  3. SYNTHROID [Concomitant]
  4. VITAMIN D [Concomitant]
  5. VITAMIN D [Concomitant]
  6. GLUCOSAMINE [GLUCOSAMINE] [Concomitant]
  7. MULTI-VITAMINS [Concomitant]

REACTIONS (1)
  - INCORRECT DRUG ADMINISTRATION DURATION [None]
